FAERS Safety Report 25798979 (Version 3)
Quarter: 2025Q4

REPORT INFORMATION
  Report Type: Spontaneous
  Country: EU (occurrence: EU)
  Receive Date: 20250913
  Receipt Date: 20251205
  Transmission Date: 20260117
  Serious: Yes (Other)
  Sender: AUROBINDO
  Company Number: EU-SUN PHARMACEUTICAL INDUSTRIES LTD-2025R1-524455

PATIENT
  Age: 58 Year
  Sex: Male

DRUGS (3)
  1. BUPIVACAINE [Suspect]
     Active Substance: BUPIVACAINE
     Indication: Anaesthesia eye
     Dosage: 0.75 PERCENT
  2. LIDOCAINE [Suspect]
     Active Substance: LIDOCAINE
     Indication: Anaesthesia eye
     Dosage: 2 PERCENT
  3. HYALURONIDASE [Suspect]
     Active Substance: HYALURONIDASE
     Indication: Anaesthesia eye
     Dosage: 1501 INTERNATIONAL UNIT PER MILLILITRE

REACTIONS (2)
  - Macular ischaemia [Recovering/Resolving]
  - Vitreous haemorrhage [Recovered/Resolved]
